FAERS Safety Report 8964106 (Version 1)
Quarter: 2012Q4

REPORT INFORMATION
  Report Type: 
  Country: JP (occurrence: JP)
  Receive Date: 20121214
  Receipt Date: 20121214
  Transmission Date: 20130627
  Serious: Yes (Hospitalization)
  Sender: FDA-Public Use
  Company Number: JP-009507513-2008SP007324

PATIENT
  Age: 33 Year
  Sex: Female
  Weight: 50 kg

DRUGS (13)
  1. TEMODAL [Suspect]
     Indication: GLIOBLASTOMA MULTIFORME
     Dosage: 100 mg, QD
     Route: 048
     Dates: start: 20070312, end: 20070316
  2. TEMODAL [Suspect]
     Dosage: 100 mg, QD
     Route: 048
     Dates: start: 20070327, end: 20070423
  3. TEMODAL [Suspect]
     Dosage: 200 mg, QD
     Route: 048
     Dates: start: 20070612, end: 20070616
  4. TEMODAL [Suspect]
     Dosage: 200 mg, QD
     Route: 048
     Dates: start: 20070710, end: 20070714
  5. TEMODAL [Suspect]
     Dosage: 200 mg, QD
     Route: 048
     Dates: start: 20070907, end: 20070911
  6. TEMODAL [Suspect]
     Dosage: 200 mg, QD
     Route: 048
     Dates: start: 20071012, end: 20071016
  7. TEMODAL [Suspect]
     Dosage: 200 mg, QD
     Route: 048
     Dates: start: 20071113, end: 20071117
  8. TEMODAL [Suspect]
     Dosage: 200 mg, QD
     Route: 048
     Dates: start: 20071218, end: 20071222
  9. TEMODAL [Suspect]
     Dosage: 200 mg, QD
     Route: 048
     Dates: start: 20080122, end: 20080126
  10. TEMODAL [Suspect]
     Dosage: 200 mg, QD
     Route: 048
     Dates: start: 20080205, end: 20080209
  11. GASTER [Concomitant]
     Dosage: 20 mg, UNK
     Route: 048
     Dates: start: 20070309
  12. RINDERON (BETAMETHASONE) [Concomitant]
     Dosage: 6 mg, qd
     Route: 048
     Dates: start: 20070309
  13. PRIMPERAN [Concomitant]
     Dosage: 5 mg, tid
     Route: 048
     Dates: start: 20070309

REACTIONS (1)
  - Acute hepatitis B [Recovered/Resolved]
